FAERS Safety Report 4609322-2 (Version None)
Quarter: 2005Q2

REPORT INFORMATION
  Report Type: 
  Country: None (occurrence: None)
  Receive Date: 20050301
  Receipt Date: 20041101
  Transmission Date: 20051028
  Serious: No
  Sender: FDA-Public Use
  Company Number: WAES 0410USA00997

PATIENT
  Age: 63 Year
  Sex: Male

DRUGS (5)
  1. ZETIA [Suspect]
     Dosage: 10MG/DAILY/PO
     Route: 048
  2. TRICOR [Concomitant]
  3. XANAX [Concomitant]
  4. ASPIRIN [Concomitant]
  5. TRAZODONE HCL [Concomitant]

REACTIONS (1)
  - CHOLELITHIASIS [None]
